FAERS Safety Report 7721437-9 (Version None)
Quarter: 2011Q3

REPORT INFORMATION
  Report Type: 
  Country: None (occurrence: None)
  Receive Date: 20110831
  Receipt Date: 20110826
  Transmission Date: 20111222
  Serious: Yes (Other)
  Sender: FDA-Public Use
  Company Number: US-ROCHE-799044

PATIENT
  Sex: Male

DRUGS (1)
  1. ACCUTANE [Suspect]
     Route: 065
     Dates: start: 20030201, end: 20040101

REACTIONS (3)
  - IRRITABLE BOWEL SYNDROME [None]
  - GASTRITIS [None]
  - COLITIS [None]
